FAERS Safety Report 9184627 (Version 1)
Quarter: 2013Q1

REPORT INFORMATION
  Report Type: Spontaneous
  Country: US (occurrence: US)
  Receive Date: 20130324
  Receipt Date: 20130324
  Transmission Date: 20140127
  Serious: Yes (Other)
  Sender: FDA-Public Use
  Company Number: US-TARO-2013P1003300

PATIENT
  Age: 7 Year
  Sex: Female

DRUGS (2)
  1. LORATADINE SYRUP (LORATADINE ORAL SOLUTION USP) 5MG/5ML [Suspect]
     Dates: start: 20130311
  2. INSULIN [Concomitant]

REACTIONS (1)
  - Blood glucose increased [Unknown]
